FAERS Safety Report 8231007-4 (Version None)
Quarter: 2012Q1

REPORT INFORMATION
  Report Type: 
  Country: None (occurrence: None)
  Receive Date: 20120323
  Receipt Date: 20120320
  Transmission Date: 20120608
  Serious: Yes (Death)
  Sender: FDA-Public Use
  Company Number: US-PFIZER INC-2011197893

PATIENT
  Sex: Male

DRUGS (3)
  1. SUTENT [Suspect]
     Indication: CARCINOID TUMOUR
     Dosage: 25 MG, 1X/DAY
     Route: 048
  2. SUTENT [Suspect]
     Dosage: 12.5 MG, DAILY
     Dates: start: 20110610
  3. SUTENT [Suspect]
     Dosage: 25 MG, UNK

REACTIONS (1)
  - DEATH [None]
